FAERS Safety Report 21174202 (Version 1)
Quarter: 2022Q3

REPORT INFORMATION
  Report Type: Spontaneous
  Country: BR (occurrence: BR)
  Receive Date: 20220804
  Receipt Date: 20220804
  Transmission Date: 20221026
  Serious: Yes (Other)
  Sender: FDA-Public Use
  Company Number: BR-MLMSERVICE-20220721-3689702-1

PATIENT
  Age: 64 Year
  Sex: Female

DRUGS (1)
  1. VENLAFAXINE [Suspect]
     Active Substance: VENLAFAXINE HYDROCHLORIDE
     Indication: Depression
     Route: 065

REACTIONS (3)
  - Cataplexy [Unknown]
  - Narcolepsy [Unknown]
  - Drug withdrawal syndrome [Unknown]
